FAERS Safety Report 22271293 (Version 1)
Quarter: 2023Q2

REPORT INFORMATION
  Report Type: Spontaneous
  Country: US (occurrence: US)
  Receive Date: 20230501
  Receipt Date: 20230501
  Transmission Date: 20230722
  Serious: Yes (Other)
  Sender: FDA-Public Use
  Company Number: US-HQ SPECIALTY-US-2023INT000056

PATIENT
  Sex: Female

DRUGS (2)
  1. CISPLATIN [Suspect]
     Active Substance: CISPLATIN
     Indication: Breast cancer
     Dosage: 75 MG/M2, DAY 1 OF A 21-DAY CYCLE
     Route: 042
  2. VELIPARIB [Suspect]
     Active Substance: VELIPARIB
     Indication: Breast cancer
     Dosage: 300 MG, BID, ON DAYS 1-14 OF THE 21-DAY CYCLETHE
     Route: 048

REACTIONS (1)
  - Embolism [Unknown]
